FAERS Safety Report 10533307 (Version 2)
Quarter: 2014Q4

REPORT INFORMATION
  Report Type: Spontaneous
  Country: US (occurrence: None)
  Receive Date: 20141020
  Receipt Date: 20141107
  Transmission Date: 20150529
  Serious: Yes (Hospitalization, Other)
  Sender: FDA-Public Use
  Company Number: FR-SEPTODONT-201402259

PATIENT
  Age: 75 Year
  Sex: Female
  Weight: 60 kg

DRUGS (7)
  1. LERCAN (LERCANIDIPINE) [Concomitant]
  2. LAROXYL (AMITRIPTYLINE) [Concomitant]
  3. DAFALGAN CODEINE (PARACETAMOL; CODEINE PHOSPHATE) [Concomitant]
  4. ATENOLOL. [Concomitant]
     Active Substance: ATENOLOL
  5. SCANDICAINE 20MG/ML ADRENALINEE AU 1/100.00 MEPIVACAINE HYDROCHLORIDE; ADRENALINE TARTRATE [Suspect]
     Active Substance: EPINEPHRINE\MEPIVACAINE HYDROCHLORIDE
     Indication: LOCAL ANAESTHESIA
     Dosage: DENTAL
     Route: 004
     Dates: start: 20140711, end: 20140711
  6. STRESAM, GELULE [Concomitant]
  7. LEVOTHROXINE SODIUM [Concomitant]
     Active Substance: LEVOTHYROXINE SODIUM

REACTIONS (3)
  - Hypertension [None]
  - Confusional state [None]
  - Amnestic disorder [None]

NARRATIVE: CASE EVENT DATE: 20140711
